FAERS Safety Report 4524698-2 (Version None)
Quarter: 2004Q4

REPORT INFORMATION
  Report Type: 
  Country: None (occurrence: None)
  Receive Date: 20041211
  Receipt Date: 20041019
  Transmission Date: 20050328
  Serious: Yes (Disabling, Other)
  Sender: FDA-Public Use
  Company Number: US-MERCK-0410USA02966

PATIENT
  Age: 48 Year
  Sex: Female
  Weight: 96 kg

DRUGS (14)
  1. VIOXX [Suspect]
     Indication: PAIN MANAGEMENT
     Route: 048
     Dates: start: 19991001, end: 20041001
  2. VIOXX [Suspect]
     Route: 048
  3. VIOXX [Suspect]
     Indication: OSTEOARTHRITIS
     Route: 048
     Dates: start: 19991001, end: 20041001
  4. VIOXX [Suspect]
     Route: 048
  5. SYNTHROID [Concomitant]
     Route: 065
  6. PREVACID [Concomitant]
     Route: 065
  7. THYROID [Concomitant]
     Route: 048
  8. ALTOCOR [Concomitant]
     Route: 065
  9. ZETIA [Concomitant]
     Route: 065
  10. ALLEGRA [Concomitant]
     Route: 065
  11. NASONEX [Concomitant]
     Route: 055
  12. LASIX [Concomitant]
     Route: 065
  13. KLONOPIN [Concomitant]
     Route: 065
  14. PAXIL CR [Concomitant]
     Route: 065

REACTIONS (8)
  - ADVERSE EVENT [None]
  - ARTHROPATHY [None]
  - ARTHROSCOPY [None]
  - CATARACT [None]
  - FACIAL PALSY [None]
  - PERIPHERAL NERVE TRANSPOSITION [None]
  - POST PROCEDURAL COMPLICATION [None]
  - WRIST FRACTURE [None]
